FAERS Safety Report 18204685 (Version 1)
Quarter: 2020Q3

REPORT INFORMATION
  Report Type: Spontaneous
  Country: US (occurrence: US)
  Receive Date: 20200827
  Receipt Date: 20200827
  Transmission Date: 20201103
  Serious: Yes (Other)
  Sender: FDA-Public Use
  Company Number: US-ASTRAZENECA-2020SF07549

PATIENT
  Age: 24083 Day
  Sex: Male
  Weight: 90.3 kg

DRUGS (1)
  1. IMFINZI [Suspect]
     Active Substance: DURVALUMAB
     Indication: NON-SMALL CELL LUNG CANCER
     Route: 041
     Dates: start: 20200402

REACTIONS (1)
  - Bronchopleural fistula [Unknown]

NARRATIVE: CASE EVENT DATE: 20200818
